FAERS Safety Report 9305699 (Version 1)
Quarter: 2013Q2

REPORT INFORMATION
  Report Type: Spontaneous
  Country: US (occurrence: US)
  Receive Date: 20130523
  Receipt Date: 20130523
  Transmission Date: 20140414
  Serious: Yes (Hospitalization, Other)
  Sender: FDA-Public Use
  Company Number: US-ELI_LILLY_AND_COMPANY-US201305004529

PATIENT
  Sex: Male

DRUGS (7)
  1. HUMALOG LISPRO [Suspect]
     Indication: TYPE 2 DIABETES MELLITUS
     Dosage: UNK, UNKNOWN
  2. HUMALOG LISPRO [Suspect]
     Dosage: 30 U, TID
     Dates: start: 201304
  3. HUMULIN NPH [Suspect]
     Indication: TYPE 2 DIABETES MELLITUS
     Dosage: UNK, UNKNOWN
  4. HUMULIN NPH [Suspect]
     Dosage: 70 U, BID
     Dates: start: 201304
  5. PREDNISONE [Concomitant]
  6. CELLCEPT [Concomitant]
  7. PROGRAF                                 /USA/ [Concomitant]

REACTIONS (1)
  - Renal failure [Unknown]
